FAERS Safety Report 14822617 (Version 1)
Quarter: 2018Q2

REPORT INFORMATION
  Report Type: Spontaneous
  Country: JP (occurrence: JP)
  Receive Date: 20180427
  Receipt Date: 20180427
  Transmission Date: 20180711
  Serious: Yes (Death, Life-Threatening)
  Sender: FDA-Public Use
  Company Number: JP-NAPPMUNDI-GBR-2018-0055285

PATIENT
  Sex: Female

DRUGS (4)
  1. OXINORM (OXYCODONE HYDROCHLORIDE) [Suspect]
     Active Substance: OXYCODONE HYDROCHLORIDE
     Dosage: 40 MG, (AS A RESCUE DOSE)
     Route: 048
  2. OXINORM (OXYCODONE HYDROCHLORIDE) [Suspect]
     Active Substance: OXYCODONE HYDROCHLORIDE
     Dosage: 40 MG, 5 TIMES A DAY
     Route: 048
  3. OXINORM (OXYCODONE HYDROCHLORIDE) [Suspect]
     Active Substance: OXYCODONE HYDROCHLORIDE
     Indication: PANCREATIC CARCINOMA
     Dosage: 40 MG, 10 TIMES A DAY
     Route: 048
     Dates: start: 201609
  4. FENTANYL. [Suspect]
     Active Substance: FENTANYL
     Indication: PANCREATIC CARCINOMA
     Dosage: 54.6 MG, DAILY
     Route: 003

REACTIONS (4)
  - Pancreatic carcinoma [Fatal]
  - Drug dependence [Not Recovered/Not Resolved]
  - Dysarthria [None]
  - Intentional product use issue [None]

NARRATIVE: CASE EVENT DATE: 201609
